FAERS Safety Report 13122884 (Version 1)
Quarter: 2017Q1

REPORT INFORMATION
  Report Type: Spontaneous
  Country: FR (occurrence: FR)
  Receive Date: 20170117
  Receipt Date: 20170117
  Transmission Date: 20170428
  Serious: Yes (Hospitalization)
  Sender: FDA-Public Use
  Company Number: FR-ALLERGAN-1701794US

PATIENT
  Age: 32 Year
  Sex: Female

DRUGS (4)
  1. PRAZEPAM [Suspect]
     Active Substance: PRAZEPAM
     Indication: SUICIDE ATTEMPT
     Dosage: UNK
     Route: 048
     Dates: start: 20160903, end: 20160903
  2. ZOPICLONE [Suspect]
     Active Substance: ZOPICLONE
     Indication: SUICIDE ATTEMPT
     Dosage: UNK
     Route: 048
     Dates: start: 20160903, end: 20160903
  3. CITALOPRAM HYDROBROMIDE - BP [Suspect]
     Active Substance: CITALOPRAM HYDROBROMIDE
     Indication: SUICIDE ATTEMPT
     Dosage: UNK
     Route: 048
     Dates: start: 20160903, end: 20160903
  4. THERALENE [Suspect]
     Active Substance: TRIMEPRAZINE
     Indication: SUICIDE ATTEMPT
     Route: 048
     Dates: start: 20160903, end: 20160903

REACTIONS (4)
  - Loss of consciousness [Recovered/Resolved]
  - Off label use [Unknown]
  - Toxicity to various agents [Recovered/Resolved]
  - Somnolence [Recovered/Resolved]

NARRATIVE: CASE EVENT DATE: 20160903
